FAERS Safety Report 12554567 (Version 1)
Quarter: 2016Q3

REPORT INFORMATION
  Report Type: Report from Study
  Country: CA (occurrence: CA)
  Receive Date: 20160713
  Receipt Date: 20160713
  Transmission Date: 20161109
  Serious: Yes (Hospitalization, Other)
  Sender: FDA-Public Use
  Company Number: CA-ABBVIE-16K-028-1672369-00

PATIENT
  Sex: Female
  Weight: 88.98 kg

DRUGS (6)
  1. PRENATAL VITAMINS [Concomitant]
     Active Substance: VITAMINS
     Indication: PRODUCT USED FOR UNKNOWN INDICATION
  2. RHOGAM [Concomitant]
     Active Substance: HUMAN RHO(D) IMMUNE GLOBULIN
     Indication: RHESUS ANTIGEN NEGATIVE
     Dosage: DURING PREGNANCY AND POSTPARTUM (RH NEGATIVE)
  3. HUMIRA [Suspect]
     Active Substance: ADALIMUMAB
     Route: 058
     Dates: start: 2016
  4. OMEGA 3 [Concomitant]
     Active Substance: OMEGA-3 FATTY ACIDS
     Indication: PRODUCT USED FOR UNKNOWN INDICATION
     Dosage: DURING WHOLE PREGNANCY
  5. FOLIC ACID. [Concomitant]
     Active Substance: FOLIC ACID
     Indication: PRODUCT USED FOR UNKNOWN INDICATION
     Dosage: FIRST TRIMESTER ONLY
  6. HUMIRA [Suspect]
     Active Substance: ADALIMUMAB
     Indication: CROHN^S DISEASE
     Route: 058
     Dates: start: 20150206, end: 2016

REACTIONS (14)
  - Foetal death [Unknown]
  - Endometritis decidual [Recovered/Resolved]
  - Mastitis postpartum [Unknown]
  - Exposure during pregnancy [Unknown]
  - Postpartum haemorrhage [Unknown]
  - Twin pregnancy [Unknown]
  - Foetal heart rate abnormal [Unknown]
  - Renal disorder in pregnancy [Unknown]
  - Amniotic cavity infection [Unknown]
  - Urinary tract infection [Unknown]
  - Postpartum sepsis [Unknown]
  - Gait disturbance [Unknown]
  - Retained products of conception [Unknown]
  - Muscle strain [Unknown]

NARRATIVE: CASE EVENT DATE: 2016
